FAERS Safety Report 9187542 (Version 1)
Quarter: 2013Q1

REPORT INFORMATION
  Report Type: Spontaneous
  Country: IT (occurrence: IT)
  Receive Date: 20130325
  Receipt Date: 20130325
  Transmission Date: 20140127
  Serious: Yes (Other)
  Sender: FDA-Public Use
  Company Number: IT-MERCK-2011SP029437

PATIENT
  Age: 36 Year
  Sex: Male

DRUGS (2)
  1. MK-8908 [Suspect]
     Indication: CHRONIC HEPATITIS C
     Dates: start: 2004
  2. PEGINTRON [Suspect]
     Dates: start: 2004

REACTIONS (2)
  - Vogt-Koyanagi-Harada syndrome [Not Recovered/Not Resolved]
  - Retinal detachment [Not Recovered/Not Resolved]
